FAERS Safety Report 10198104 (Version 1)
Quarter: 2014Q2

REPORT INFORMATION
  Report Type: Spontaneous
  Country: US (occurrence: US)
  Receive Date: 20140527
  Receipt Date: 20140527
  Transmission Date: 20141212
  Serious: No
  Sender: FDA-Public Use
  Company Number: US-NOVEN-13US006884

PATIENT
  Sex: Male

DRUGS (2)
  1. DAYTRANA [Suspect]
     Indication: ATTENTION DEFICIT/HYPERACTIVITY DISORDER
     Dosage: 20 MG MON-FRI
     Route: 062
     Dates: start: 2012
  2. DAYTRANA [Suspect]
     Dosage: 30MG SAT-SUN
     Route: 062
     Dates: start: 2012

REACTIONS (1)
  - Application site erythema [Recovered/Resolved]
